FAERS Safety Report 7341476-X (Version None)
Quarter: 2011Q1

REPORT INFORMATION
  Report Type: 
  Country: None (occurrence: None)
  Receive Date: 20110228
  Receipt Date: 20110214
  Transmission Date: 20110831
  Serious: Yes (Other)
  Sender: FDA-Public Use
  Company Number: A-11-007

PATIENT
  Sex: Male

DRUGS (2)
  1. ALBUTEROL SULFATE [Suspect]
     Indication: BRONCHOSPASM
     Dosage: INHALATION VIA NEBULIZER
     Route: 055
  2. LASIX [Concomitant]

REACTIONS (7)
  - URINARY RETENTION [None]
  - PAIN [None]
  - CONFUSIONAL STATE [None]
  - ASTHENIA [None]
  - VOMITING [None]
  - DYSPNOEA [None]
  - DISORIENTATION [None]
